FAERS Safety Report 10835199 (Version 2)
Quarter: 2015Q1

REPORT INFORMATION
  Report Type: Spontaneous
  Country: IE (occurrence: IE)
  Receive Date: 20150219
  Receipt Date: 20150224
  Transmission Date: 20150721
  Serious: No
  Sender: FDA-Public Use
  Company Number: IE-009507513-1412IND000634

PATIENT
  Age: 44 Year
  Sex: Male

DRUGS (1)
  1. ERTAPENEM SODIUM [Suspect]
     Active Substance: ERTAPENEM SODIUM
     Indication: UROSEPSIS
     Dosage: UNK
     Route: 042

REACTIONS (1)
  - Drug ineffective [Unknown]
